FAERS Safety Report 24200034 (Version 1)
Quarter: 2024Q3

REPORT INFORMATION
  Report Type: Spontaneous
  Country: US (occurrence: US)
  Receive Date: 20240812
  Receipt Date: 20240812
  Transmission Date: 20241017
  Serious: No
  Sender: Haleon PLC
  Company Number: US-HALEON-2191386

PATIENT

DRUGS (2)
  1. ADVIL SINUS CONGESTION AND PAIN RELIEF [Suspect]
     Active Substance: IBUPROFEN\PHENYLEPHRINE HYDROCHLORIDE
     Indication: Glaucoma
  2. ADVIL SINUS CONGESTION AND PAIN RELIEF [Suspect]
     Active Substance: IBUPROFEN\PHENYLEPHRINE HYDROCHLORIDE
     Indication: Sinusitis

REACTIONS (1)
  - Off label use [Unknown]
